APPROVED DRUG PRODUCT: PENICILLIN G POTASSIUM
Active Ingredient: PENICILLIN G POTASSIUM
Strength: 1,000,000 UNITS/VIAL **Federal Register determination that product was not discontinued or withdrawn for safety or effectiveness reasons**
Dosage Form/Route: INJECTABLE;INJECTION
Application: A065079 | Product #001
Applicant: SANDOZ INC
Approved: Aug 30, 2002 | RLD: No | RS: No | Type: DISCN